FAERS Safety Report 11974888 (Version 1)
Quarter: 2016Q1

REPORT INFORMATION
  Report Type: Report from Study
  Country: US (occurrence: US)
  Receive Date: 20160128
  Receipt Date: 20160128
  Transmission Date: 20160526
  Serious: Yes (Other)
  Sender: FDA-Public Use
  Company Number: US-GILEAD-2016-0194837

PATIENT
  Age: 54 Year
  Sex: Male

DRUGS (1)
  1. LEDIPASVIR/SOFOSBUVIR [Suspect]
     Active Substance: LEDIPASVIR\SOFOSBUVIR
     Indication: HEPATITIS C
     Dosage: 1 DF, QD
     Route: 048
     Dates: start: 20150301, end: 20150601

REACTIONS (8)
  - Somnolence [Unknown]
  - Liver disorder [Unknown]
  - Ammonia increased [Unknown]
  - Drug ineffective [Unknown]
  - Weight increased [Unknown]
  - Hypersomnia [Unknown]
  - Depressed level of consciousness [Unknown]
  - Headache [Unknown]
